FAERS Safety Report 7400149-5 (Version None)
Quarter: 2011Q2

REPORT INFORMATION
  Report Type: 
  Country: None (occurrence: None)
  Receive Date: 20110407
  Receipt Date: 20110328
  Transmission Date: 20111010
  Serious: Yes (Other)
  Sender: FDA-Public Use
  Company Number: PHHY2010JP02771

PATIENT
  Age: 61 Year
  Sex: Female

DRUGS (12)
  1. SANDOSTATIN LAR [Suspect]
     Dosage: 20 MG, QMO
     Route: 030
     Dates: start: 20070901
  2. MECOBALAMIN [Concomitant]
     Dosage: 2 DF, BID
     Route: 048
  3. SOMAVERT [Concomitant]
     Dosage: 20 MG, QW
     Dates: start: 20090801
  4. ENCHININ [Concomitant]
     Dosage: 2 DF, BID
     Route: 048
  5. SANDOSTATIN LAR [Suspect]
     Dosage: 20 MG, QMO
     Route: 030
     Dates: start: 20090801
  6. SOMAVERT [Concomitant]
     Dosage: UNK
     Dates: start: 20080101
  7. SANDOSTATIN LAR [Suspect]
     Indication: ACROMEGALY
     Dosage: 20 MG, QMO
     Route: 030
     Dates: start: 20040601
  8. SOMAVERT [Concomitant]
     Indication: ACROMEGALY
     Dosage: 10 MG, QW2
     Route: 058
     Dates: start: 20070904
  9. EPADEL [Concomitant]
     Dosage: 900 MG, ONE DOSE IN MORNING A DAY
     Route: 048
  10. SANDOSTATIN LAR [Suspect]
     Dosage: 20 MG, QMO
     Route: 030
     Dates: start: 20080101
  11. BLOPRESS [Concomitant]
     Dosage: ONE DOSE IN MORNING A DAY
     Route: 048
  12. LEVOTHYROXINE SODIUM [Concomitant]
     Dosage: ONE DOSE IN MORNING A DAY
     Route: 048

REACTIONS (9)
  - ARTHRALGIA [None]
  - DRUG EFFECT DECREASED [None]
  - GLUCOSE TOLERANCE IMPAIRED [None]
  - OEDEMA [None]
  - ACROMEGALY [None]
  - HYPOAESTHESIA [None]
  - FATIGUE [None]
  - DIABETIC COMPLICATION [None]
  - GLYCOSYLATED HAEMOGLOBIN INCREASED [None]
